FAERS Safety Report 20840107 (Version 12)
Quarter: 2023Q2

REPORT INFORMATION
  Report Type: Report from Study
  Country: US (occurrence: US)
  Receive Date: 20220517
  Receipt Date: 20230605
  Transmission Date: 20230721
  Serious: No
  Sender: FDA-Public Use
  Company Number: US-NOVARTISTESTPH-NVSC2022US112834

PATIENT
  Sex: Female
  Weight: 83.447 kg

DRUGS (5)
  1. TREPROSTINIL [Suspect]
     Active Substance: TREPROSTINIL
     Indication: Pulmonary arterial hypertension
     Dosage: 43.5 NG/KG/MIN, CONT
     Route: 058
     Dates: start: 20210812
  2. TREPROSTINIL [Suspect]
     Active Substance: TREPROSTINIL
     Dosage: 43.5 NG/KG/MIN, CONT
     Route: 058
  3. TREPROSTINIL [Suspect]
     Active Substance: TREPROSTINIL
     Dosage: 43.5 NG/KG/MIN, CONT
     Route: 058
  4. TREPROSTINIL [Suspect]
     Active Substance: TREPROSTINIL
     Dosage: 43.5 NG/KG/MIN, CONT
     Route: 058
  5. OPSUMIT [Concomitant]
     Active Substance: MACITENTAN
     Indication: Product used for unknown indication
     Dosage: UNK
     Route: 065

REACTIONS (11)
  - Thermal burn [Unknown]
  - Abdominal discomfort [Unknown]
  - Eating disorder [Unknown]
  - Lymphadenopathy [Unknown]
  - Weight decreased [Unknown]
  - Hunger [Unknown]
  - Dyspnoea [Unknown]
  - Fatigue [Unknown]
  - Injection site pain [Unknown]
  - Injection site pruritus [Unknown]
  - Therapeutic response decreased [Unknown]
